FAERS Safety Report 19688509 (Version 1)
Quarter: 2021Q3

REPORT INFORMATION
  Report Type: Spontaneous
  Country: US (occurrence: US)
  Receive Date: 20210811
  Receipt Date: 20210811
  Transmission Date: 20211014
  Serious: No
  Sender: FDA-Public Use
  Company Number: US-SA-2021SA257979

PATIENT
  Sex: Male

DRUGS (3)
  1. UNISOM SLEEPTABS [Suspect]
     Active Substance: DOXYLAMINE SUCCINATE
     Indication: SLEEP DISORDER
     Dosage: UNK
  2. SOMNAPURE [DIETARY SUPPLEMENT\HERBALS] [Suspect]
     Active Substance: DIETARY SUPPLEMENT\HERBALS
     Indication: SLEEP DISORDER
     Dosage: UNK
  3. AMBIEN [Suspect]
     Active Substance: ZOLPIDEM TARTRATE
     Indication: SLEEP DISORDER
     Dosage: UNK

REACTIONS (1)
  - Therapeutic response decreased [Unknown]
